FAERS Safety Report 15022387 (Version 1)
Quarter: 2018Q2

REPORT INFORMATION
  Report Type: Spontaneous
  Country: US (occurrence: US)
  Receive Date: 20180601
  Receipt Date: 20180601
  Transmission Date: 20180711
  Serious: Yes (Life-Threatening, Hospitalization)
  Sender: FDA-Public Use
  Company Number: None

PATIENT
  Age: 50 Year
  Sex: Female
  Weight: 59 kg

DRUGS (6)
  1. APIXABAN [Suspect]
     Active Substance: APIXABAN
     Indication: DEEP VEIN THROMBOSIS
     Route: 048
     Dates: start: 20180513, end: 20180516
  2. APIXABAN [Suspect]
     Active Substance: APIXABAN
     Indication: PULMONARY EMBOLISM
     Route: 048
     Dates: start: 20180513, end: 20180516
  3. PHENYTOIN. [Suspect]
     Active Substance: PHENYTOIN
     Indication: SEIZURE
     Route: 048
     Dates: start: 20180430, end: 20180525
  4. PHENYTOIN. [Suspect]
     Active Substance: PHENYTOIN
     Indication: SUBDURAL HAEMATOMA
     Route: 048
     Dates: start: 20180430, end: 20180525
  5. APIXABAN 5MG [Concomitant]
     Dates: start: 20180513, end: 20180516
  6. PHENYTOIN 100 MG [Concomitant]
     Active Substance: PHENYTOIN
     Dates: start: 20180429, end: 20180525

REACTIONS (4)
  - Pulmonary embolism [None]
  - Seizure [None]
  - Mental status changes [None]
  - Chest pain [None]

NARRATIVE: CASE EVENT DATE: 20180516
